FAERS Safety Report 6114728-9 (Version None)
Quarter: 2009Q1

REPORT INFORMATION
  Report Type: 
  Country: None (occurrence: None)
  Receive Date: 20090313
  Receipt Date: 20090304
  Transmission Date: 20090719
  Serious: Yes (Disabling)
  Sender: FDA-Public Use
  Company Number: PHHY2009FR08528

PATIENT
  Sex: Female

DRUGS (1)
  1. ZOMETA [Suspect]
     Dosage: UNK
     Dates: start: 20060101, end: 20071101

REACTIONS (3)
  - GINGIVAL ULCERATION [None]
  - OSTEONECROSIS [None]
  - TOOTHACHE [None]
